FAERS Safety Report 4983824-1 (Version None)
Quarter: 2006Q1

REPORT INFORMATION
  Report Type: 
  Country: None (occurrence: None)
  Receive Date: 20060301
  Receipt Date: 20051117
  Transmission Date: 20060701
  Serious: No
  Sender: FDA-Public Use
  Company Number: S05-USA-04994-01

PATIENT
  Age: 82 Year
  Sex: Male

DRUGS (11)
  1. NAMENDA [Suspect]
     Indication: DEMENTIA
     Dosage: 10 MG BID PO
     Route: 048
     Dates: start: 20051027
  2. NAMENDA [Suspect]
     Indication: DEMENTIA
     Dosage: 5 MG QD PO
     Route: 048
     Dates: start: 20051006, end: 20051012
  3. NAMENDA [Suspect]
     Indication: DEMENTIA
     Dosage: 5 MG BID PO
     Route: 048
     Dates: start: 20051013, end: 20051019
  4. NAMENDA [Suspect]
     Indication: DEMENTIA
     Dosage: 15 MG QD PO
     Route: 048
     Dates: start: 20051020, end: 20051026
  5. LASIX [Concomitant]
  6. RAZADYNE (GALANTAMINE) [Concomitant]
  7. PRINIVIL [Concomitant]
  8. COREG [Concomitant]
  9. COUMADIN [Concomitant]
  10. LANOXIN [Concomitant]
  11. VITAMINS [Concomitant]

REACTIONS (2)
  - AGGRESSION [None]
  - MOOD SWINGS [None]
